FAERS Safety Report 16845869 (Version 2)
Quarter: 2019Q4

REPORT INFORMATION
  Report Type: Spontaneous
  Country: US (occurrence: US)
  Receive Date: 20190924
  Receipt Date: 20191226
  Transmission Date: 20200122
  Serious: No
  Sender: FDA-Public Use
  Company Number: US-CATALYST PHARMACEUTICALS, INC-2019CAT00272

PATIENT
  Sex: Female
  Weight: 80.73 kg

DRUGS (10)
  1. FIRDAPSE [Suspect]
     Active Substance: AMIFAMPRIDINE
     Dosage: UNK LOWER DOSE
     Route: 048
     Dates: start: 2019, end: 2019
  2. HUMALOG [Concomitant]
     Active Substance: INSULIN LISPRO
     Dosage: 8 U, 1X/DAY AT DINNER
  3. LANTUS [Concomitant]
     Active Substance: INSULIN GLARGINE
     Dosage: 42 U, 1X/DAY IN THE MORNING
  4. PREDNISONE. [Concomitant]
     Active Substance: PREDNISONE
  5. ROBINUL [Concomitant]
     Active Substance: GLYCOPYRROLATE
  6. UNSPECIFIED THYROID PILL [Concomitant]
  7. MESTINON [Concomitant]
     Active Substance: PYRIDOSTIGMINE BROMIDE
  8. FIRDAPSE [Suspect]
     Active Substance: AMIFAMPRIDINE
     Dosage: 20 MG, 4X/DAY
     Dates: start: 2019
  9. FIRDAPSE [Suspect]
     Active Substance: AMIFAMPRIDINE
     Indication: MYASTHENIC SYNDROME
     Dosage: 20 MG, 4X/DAY
     Route: 048
     Dates: start: 201901, end: 2019
  10. HUMALOG [Concomitant]
     Active Substance: INSULIN LISPRO
     Dosage: 4 U, BEFORE MEALS

REACTIONS (7)
  - Asthenia [Not Recovered/Not Resolved]
  - Dyspnoea [Not Recovered/Not Resolved]
  - Pain [Not Recovered/Not Resolved]
  - Insomnia [Not Recovered/Not Resolved]
  - Arthralgia [Not Recovered/Not Resolved]
  - Dysphagia [Not Recovered/Not Resolved]
  - Pain in extremity [Not Recovered/Not Resolved]

NARRATIVE: CASE EVENT DATE: 2019
